FAERS Safety Report 8917419 (Version 2)
Quarter: 2012Q4

REPORT INFORMATION
  Report Type: 
  Country: GB (occurrence: GB)
  Receive Date: 20121120
  Receipt Date: 20121126
  Transmission Date: 20130627
  Serious: Yes (Congenital Anomaly)
  Sender: FDA-Public Use
  Company Number: GB-PFIZER INC-2012286551

PATIENT

DRUGS (1)
  1. CABERGOLINE [Suspect]
     Indication: HYPERPROLACTINAEMIA
     Dosage: 500 ug, 1x/day
     Route: 064
     Dates: start: 20080424

REACTIONS (2)
  - Maternal exposure timing unspecified [Unknown]
  - Trisomy 18 [Unknown]
